FAERS Safety Report 8144106-2 (Version None)
Quarter: 2012Q1

REPORT INFORMATION
  Report Type: 
  Country: None (occurrence: None)
  Receive Date: 20120103
  Receipt Date: 20111024
  Transmission Date: 20120608
  Serious: No
  Sender: FDA-Public Use
  Company Number: AE-2011-002018

PATIENT
  Age: 55 Year
  Sex: Female
  Weight: 97.5234 kg

DRUGS (8)
  1. SINGULAIR [Concomitant]
  2. INCIVEK [Suspect]
     Dosage: 2250 MG (750 MG, 1 IN 8 HR), ORAL
     Route: 048
     Dates: start: 20110930
  3. RIBAVIRIN [Concomitant]
  4. TOPROL-XL [Concomitant]
  5. PEGASYS [Concomitant]
  6. LISINOPRIL [Concomitant]
  7. ASPIRIN [Concomitant]
  8. NABUMETONE [Concomitant]

REACTIONS (2)
  - RASH ERYTHEMATOUS [None]
  - PRURITUS [None]
